FAERS Safety Report 25383232 (Version 1)
Quarter: 2025Q2

REPORT INFORMATION
  Report Type: Report from Study
  Country: US (occurrence: US)
  Receive Date: 20250602
  Receipt Date: 20250602
  Transmission Date: 20250716
  Serious: Yes (Congenital Anomaly, Other)
  Sender: AUROBINDO
  Company Number: US-AUROBINDO-AUR-APL-2022-025212

PATIENT

DRUGS (1)
  1. DOLUTEGRAVIR [Suspect]
     Active Substance: DOLUTEGRAVIR
     Indication: HIV infection
     Route: 064

REACTIONS (3)
  - Neural tube defect [Unknown]
  - Spina bifida [Unknown]
  - Foetal exposure during pregnancy [Unknown]
